FAERS Safety Report 8114631-9 (Version None)
Quarter: 2012Q1

REPORT INFORMATION
  Report Type: 
  Country: None (occurrence: None)
  Receive Date: 20120206
  Receipt Date: 20120130
  Transmission Date: 20120608
  Serious: Yes (Other)
  Sender: FDA-Public Use
  Company Number: US-PFIZER INC-2012026100

PATIENT
  Sex: Male

DRUGS (3)
  1. PROTONIX [Suspect]
     Dosage: UNK
  2. NORVASC [Suspect]
     Dosage: UNK
  3. NEURONTIN [Suspect]
     Dosage: UNK

REACTIONS (4)
  - APHAGIA [None]
  - PHARYNGEAL DISORDER [None]
  - GASTROOESOPHAGEAL REFLUX DISEASE [None]
  - MALAISE [None]
